FAERS Safety Report 5340191-1 (Version None)
Quarter: 2007Q2

REPORT INFORMATION
  Report Type: 
  Country: None (occurrence: None)
  Receive Date: 20070531
  Receipt Date: 20070531
  Transmission Date: 20071010
  Serious: Yes (Death, Life-Threatening, Hospitalization)
  Sender: FDA-Public Use
  Company Number: B0472400A

PATIENT
  Age: 82 Year
  Sex: Female

DRUGS (13)
  1. ZELITREX [Suspect]
     Indication: HERPES ZOSTER
     Dosage: 6TAB PER DAY
     Route: 048
     Dates: start: 20070416, end: 20070418
  2. SOLIAN [Suspect]
     Dosage: 50MG PER DAY
     Route: 048
     Dates: end: 20070418
  3. DOLIPRANE [Suspect]
     Dosage: 1500MG PER DAY
     Route: 048
     Dates: start: 20070416, end: 20070423
  4. NEORECORMON [Suspect]
     Dosage: 5000IU CYCLIC
     Route: 058
     Dates: start: 20070305, end: 20070413
  5. NOVONORM [Suspect]
     Dosage: 1MG PER DAY
     Route: 048
     Dates: end: 20070419
  6. ATHYMIL 30 MG [Suspect]
     Dosage: 30MG PER DAY
     Route: 048
     Dates: end: 20070419
  7. TIMOPTIC [Concomitant]
     Route: 065
  8. TRUSOPT [Concomitant]
     Route: 065
  9. XALATAN [Concomitant]
     Route: 065
  10. UMULINE [Concomitant]
     Route: 065
  11. SERESTA [Concomitant]
     Route: 065
  12. FUNGIZONE [Concomitant]
     Route: 050
     Dates: start: 20070418
  13. BICARBONATE [Concomitant]
     Route: 050
     Dates: start: 20070418

REACTIONS (4)
  - ALTERED STATE OF CONSCIOUSNESS [None]
  - DEATH [None]
  - RENAL FAILURE ACUTE [None]
  - THROMBOCYTOPENIA [None]
